FAERS Safety Report 8588492-8 (Version None)
Quarter: 2012Q3

REPORT INFORMATION
  Report Type: 
  Country: None (occurrence: None)
  Receive Date: 20120813
  Receipt Date: 20120803
  Transmission Date: 20120928
  Serious: Yes (Hospitalization, Other)
  Sender: FDA-Public Use
  Company Number: CA-JNJFOC-20120803135

PATIENT
  Sex: Female
  Weight: 38 kg

DRUGS (10)
  1. REMICADE [Suspect]
     Route: 042
     Dates: start: 20120803
  2. WARFARIN SODIUM [Suspect]
     Indication: PRODUCT USED FOR UNKNOWN INDICATION
     Route: 065
  3. SOLU-CORTEF [Concomitant]
     Indication: PREMEDICATION
     Route: 065
  4. CALCIUM [Concomitant]
  5. IMURAN [Concomitant]
  6. MORPHINE [Concomitant]
     Dosage: AS NECESSARY
     Route: 065
  7. DESLORATADINE [Concomitant]
     Indication: PREMEDICATION
     Route: 065
  8. REMICADE [Suspect]
     Indication: CROHN'S DISEASE
     Route: 042
     Dates: start: 20120427
  9. MULTI-VITAMINS [Concomitant]
  10. ACTONEL [Concomitant]
     Route: 065

REACTIONS (7)
  - DEHYDRATION [None]
  - INFUSION RELATED REACTION [None]
  - HAEMATOCHEZIA [None]
  - FLUSHING [None]
  - DYSPNOEA [None]
  - HYPOTENSION [None]
  - NAUSEA [None]
